FAERS Safety Report 10502165 (Version 2)
Quarter: 2014Q4

REPORT INFORMATION
  Report Type: Spontaneous
  Country: US (occurrence: US)
  Receive Date: 20141007
  Receipt Date: 20141009
  Transmission Date: 20150528
  Serious: No
  Sender: FDA-Public Use
  Company Number: US-PFIZER INC-2014273759

PATIENT
  Age: 57 Year
  Sex: Female
  Weight: 51 kg

DRUGS (1)
  1. ESTRING [Suspect]
     Active Substance: ESTRADIOL
     Indication: MENOPAUSAL SYMPTOMS
     Dosage: 2 MG, UNK
     Dates: start: 2013

REACTIONS (2)
  - Drug ineffective [Unknown]
  - Drug administration error [Unknown]
